FAERS Safety Report 14276896 (Version 1)
Quarter: 2017Q4

REPORT INFORMATION
  Report Type: Spontaneous
  Country: US (occurrence: US)
  Receive Date: 20171212
  Receipt Date: 20171212
  Transmission Date: 20180321
  Serious: Yes (Hospitalization, Other)
  Sender: FDA-Public Use
  Company Number: US-PFIZER INC-2017052044

PATIENT
  Age: 53 Year
  Sex: Female
  Weight: 71.67 kg

DRUGS (31)
  1. MONOKET [Concomitant]
     Active Substance: ISOSORBIDE MONONITRATE
     Dosage: 10 MG, UNK
     Route: 048
  2. PRINIVIL [Concomitant]
     Active Substance: LISINOPRIL
     Dosage: UNK, DAILY [TAKE 0.5 TABS (2.5 MG TOTAL)]
     Route: 048
  3. FLAGYL [Concomitant]
     Active Substance: METRONIDAZOLE\METRONIDAZOLE HYDROCHLORIDE
     Dosage: 500 MG, 3X/DAY [DAILY]
     Route: 048
  4. LIPITOR [Concomitant]
     Active Substance: ATORVASTATIN CALCIUM
     Dosage: 80 MG, 1X/DAY [AT BEDTIME]
     Route: 048
  5. LYRICA [Suspect]
     Active Substance: PREGABALIN
     Indication: DIABETIC NEUROPATHY
     Dosage: 150 MG, 3X/DAY
     Route: 048
     Dates: start: 2016
  6. LYRICA [Suspect]
     Active Substance: PREGABALIN
     Indication: PAIN
     Dosage: 150 MG, 3X/DAY
     Route: 048
     Dates: start: 20170126
  7. LYRICA [Suspect]
     Active Substance: PREGABALIN
     Indication: NEUROPATHY PERIPHERAL
  8. VENTOLIN [Concomitant]
     Active Substance: ALBUTEROL SULFATE
     Dosage: 216 UG, AS NEEDED  (INHALE 2 PUFFS EVERY 6 HOURS AS NEEDED)
     Route: 055
  9. COREG [Concomitant]
     Active Substance: CARVEDILOL
     Dosage: 3.125 MG, 2X/DAY [EVERY 12 HOURS (6AM/6PM)]
     Route: 048
  10. LASIX [Concomitant]
     Active Substance: FUROSEMIDE
     Dosage: 20 MG, DAILY
     Route: 048
  11. ZESTRIL [Concomitant]
     Active Substance: LISINOPRIL
     Dosage: UNK, DAILY [TAKE 0.5 TABS (2.5 MG TOTAL)]
     Route: 048
  12. PROTONIX [Concomitant]
     Active Substance: PANTOPRAZOLE SODIUM
     Dosage: 40 MG, DAILY
     Route: 048
  13. DELTASONE [Concomitant]
     Active Substance: PREDNISONE
     Dosage: 20 MG, DAILY
     Route: 048
  14. AMBIEN [Concomitant]
     Active Substance: ZOLPIDEM TARTRATE
     Dosage: 5 MG, AS NEEDED [AT BEDTIME]
     Route: 048
  15. PROVENTIL [Concomitant]
     Active Substance: ALBUTEROL
     Dosage: 216 UG, AS NEEDED (INHALE 2 PUFFS EVERY 6 HOURS AS NEEDED)
     Route: 055
  16. DUONEB [Concomitant]
     Active Substance: ALBUTEROL SULFATE\IPRATROPIUM BROMIDE
     Dosage: 3 ML, 4X/DAY [[IPRATROPIUM 0.5 MG]/[ALBUTEROL 2.5 MG]] [EVERY 6 HOUR]/0.5-2.5 (3) MG/3ML
     Route: 055
  17. ZITHROMAX [Concomitant]
     Active Substance: AZITHROMYCIN DIHYDRATE
     Dosage: 250 MG, DAILY
     Route: 048
  18. FLEXERIL [Concomitant]
     Active Substance: CYCLOBENZAPRINE HYDROCHLORIDE
     Dosage: 10 MG, 3X/DAY[DAILY]
     Route: 048
  19. LANTUS [Concomitant]
     Active Substance: INSULIN GLARGINE
     Dosage: 65 IU, 1X/DAY [EVERY MORNING AT 7AM]
     Route: 058
  20. NITROSTAT [Concomitant]
     Active Substance: NITROGLYCERIN
     Indication: CHEST PAIN
     Dosage: 0.4 MG, AS NEEDED [DISSOLVE 1 TAB/ UNDER THE TONGUE EVERY 5 MINUTES]
     Route: 060
  21. GLUCOPHAGE [Concomitant]
     Active Substance: METFORMIN HYDROCHLORIDE
     Dosage: 500 MG, 2X/DAY [DAILY BEFORE MEALS (07-17)]
     Route: 048
  22. PHENERGAN [Concomitant]
     Active Substance: PROMETHAZINE HYDROCHLORIDE
     Dosage: 25 MG, AS NEEDED [EVERY 6 HOURS]
  23. BRILINTA [Concomitant]
     Active Substance: TICAGRELOR
     Indication: ANTIPLATELET THERAPY
     Dosage: 90 MG, 2X/DAY[DAILY]
     Route: 048
  24. HUMULIN N [Concomitant]
     Active Substance: INSULIN HUMAN
     Dosage: 10 IU, 2X/DAY [DAILY BEFORE MEALS 907-17)]
     Route: 058
  25. HALDOL [Concomitant]
     Active Substance: HALOPERIDOL
     Dosage: 1 MG, AS NEEDED [EVERY 6 HOURS AS NEEDED TAKE WHILE ON PREDNISONE]
     Route: 048
  26. NOVOLIN N [Concomitant]
     Active Substance: INSULIN HUMAN
     Dosage: 10 IU, 2X/DAY [DAILY BEFORE MEALS (07-17)]
     Route: 058
  27. LYRICA [Suspect]
     Active Substance: PREGABALIN
     Indication: FIBROMYALGIA
     Dosage: 150 MG, 3X/DAY
     Route: 048
     Dates: start: 20170928
  28. ASPIRIN EC [Concomitant]
     Active Substance: ASPIRIN
     Dosage: 81 MG, DAILY
     Route: 048
  29. ZANAFLEX [Concomitant]
     Active Substance: TIZANIDINE HYDROCHLORIDE
     Dosage: 2 MG, 3X/DAY [EVERY 8 HOURS (8-16-24) ]
     Route: 048
  30. HUMALOG [Concomitant]
     Active Substance: INSULIN LISPRO
     Dosage: UNK
     Route: 058
  31. NOVOLIN N [Concomitant]
     Active Substance: INSULIN HUMAN
     Dosage: 10 IU, 2X/DAY [DAILY BEFORE MEALS (07-17)]
     Route: 058
     Dates: start: 20170928

REACTIONS (13)
  - Cardiac failure congestive [Not Recovered/Not Resolved]
  - Cough [Unknown]
  - Heart injury [Unknown]
  - Lower respiratory tract infection [Not Recovered/Not Resolved]
  - Drug effect incomplete [Not Recovered/Not Resolved]
  - Arrhythmia [Recovering/Resolving]
  - Ventricular extrasystoles [Recovering/Resolving]
  - Sedation [Recovering/Resolving]
  - Myocardial infarction [Recovered/Resolved]
  - Pulmonary congestion [Not Recovered/Not Resolved]
  - Pulmonary oedema [Unknown]
  - Bronchitis [Not Recovered/Not Resolved]
  - Vision blurred [Not Recovered/Not Resolved]

NARRATIVE: CASE EVENT DATE: 2016
